FAERS Safety Report 13204963 (Version 1)
Quarter: 2017Q1

REPORT INFORMATION
  Report Type: Spontaneous
  Country: US (occurrence: US)
  Receive Date: 20170209
  Receipt Date: 20170209
  Transmission Date: 20170428
  Serious: No
  Sender: FDA-Public Use
  Company Number: US-TEVA-734253ACC

PATIENT
  Age: 64 Year
  Sex: Male

DRUGS (10)
  1. COPAXONE [Suspect]
     Active Substance: GLATIRAMER ACETATE
     Indication: MULTIPLE SCLEROSIS
     Dosage: PREFILLED SYRINGE
     Route: 058
     Dates: start: 20150327
  2. ATORVASTATIN TAB 10 MG [Concomitant]
  3. VITAMIN D3 CAP 10000 UNIT [Concomitant]
  4. AMANTADINE CAP 100MG [Concomitant]
  5. ASPIR-81 TAB 81 MG EC [Concomitant]
  6. COQ10 CAP 100 MG [Concomitant]
  7. CARBAMAZEPIN TAB 200 MG [Concomitant]
  8. BACLOFEN TAB 10 MG [Concomitant]
  9. VITAMIN B12 TAB 100 CR [Concomitant]
  10. OXYBUTYNIN TAB 5 MG [Concomitant]

REACTIONS (2)
  - Fall [Unknown]
  - Balance disorder [Unknown]

NARRATIVE: CASE EVENT DATE: 201511
